FAERS Safety Report 4790390-2 (Version None)
Quarter: 2005Q4

REPORT INFORMATION
  Report Type: 
  Country: None (occurrence: None)
  Receive Date: 20051005
  Receipt Date: 20050919
  Transmission Date: 20060501
  Serious: Yes (Hospitalization, Other)
  Sender: FDA-Public Use
  Company Number: 2005-US-00198

PATIENT
  Age: 52 Year
  Sex: Male

DRUGS (3)
  1. PROMPT PHENYTOIN SODIUM [Suspect]
     Indication: GRAND MAL CONVULSION
     Dosage: 300 MG QD, ORAL
     Route: 048
  2. FOLIC ACID [Suspect]
     Indication: ANAEMIA MACROCYTIC
     Dosage: 5 MG QD, ORAL
     Route: 048
  3. MORPHINE [Concomitant]

REACTIONS (2)
  - ANTICONVULSANT DRUG LEVEL DECREASED [None]
  - GRAND MAL CONVULSION [None]
